FAERS Safety Report 5117033-2 (Version None)
Quarter: 2006Q3

REPORT INFORMATION
  Report Type: 
  Country: None (occurrence: None)
  Receive Date: 20060925
  Receipt Date: 20060912
  Transmission Date: 20061208
  Serious: Yes (Death, Other)
  Sender: FDA-Public Use
  Company Number: 2006110105

PATIENT
  Age: 26 Year
  Sex: Female

DRUGS (1)
  1. ZYVOX [Suspect]
     Indication: STAPHYLOCOCCAL INFECTION
     Dosage: INTRAVENOUS
     Route: 042
     Dates: start: 20060711

REACTIONS (3)
  - ARTERIOVENOUS FISTULA OCCLUSION [None]
  - SEPSIS [None]
  - VOMITING [None]
